FAERS Safety Report 5313875-9 (Version None)
Quarter: 2007Q2

REPORT INFORMATION
  Report Type: 
  Country: None (occurrence: None)
  Receive Date: 20070501
  Receipt Date: 20070417
  Transmission Date: 20071010
  Serious: Yes (Other)
  Sender: FDA-Public Use
  Company Number: JP-ROCHE-491358

PATIENT
  Age: 12 Year
  Sex: Female
  Weight: 40 kg

DRUGS (3)
  1. TAMIFLU [Suspect]
     Indication: INFLUENZA
     Dosage: FORM:DRY SYRUP.
     Route: 048
     Dates: start: 20070209, end: 20070213
  2. 1 CONCOMITANT DRUG [Concomitant]
     Dosage: DRUG REPORTED AS ^NIPOLAZINE^.
     Route: 048
     Dates: start: 20070209, end: 20070209
  3. LOXONIN [Concomitant]
     Route: 048
     Dates: start: 20070209, end: 20070209

REACTIONS (2)
  - EPILEPSY [None]
  - LOSS OF CONSCIOUSNESS [None]
